FAERS Safety Report 26215578 (Version 1)
Quarter: 2025Q4

REPORT INFORMATION
  Report Type: Spontaneous
  Country: EU (occurrence: EU)
  Receive Date: 20251231
  Receipt Date: 20251231
  Transmission Date: 20260118
  Serious: Yes (Hospitalization, Other)
  Sender: AUROBINDO
  Company Number: EU-AFSSAPS-NY2025001990

PATIENT
  Age: 67 Year
  Sex: Male
  Weight: 93 kg

DRUGS (8)
  1. LEVOFLOXACIN [Suspect]
     Active Substance: LEVOFLOXACIN
     Indication: Arthritis bacterial
     Dosage: 500 MILLIGRAM, TWO TIMES A DAY
     Route: 061
     Dates: start: 20250502, end: 20250522
  2. RIFAMPIN [Suspect]
     Active Substance: RIFAMPIN
     Indication: Arthritis bacterial
     Dosage: 300 MILLIGRAM, 3 TIMES A DAY
     Route: 061
     Dates: start: 20250502, end: 20250515
  3. ADENURIC 120 mg, comprim? pellicul? [Concomitant]
     Indication: Gout
     Dosage: 120 MILLIGRAM, ONCE A DAY
     Route: 061
  4. COLCHICINE [Concomitant]
     Active Substance: COLCHICINE
     Indication: Gout
     Dosage: 1 MILLIGRAM, ONCE A DAY
     Route: 061
  5. CANDESARTAN CILEXETIL [Concomitant]
     Active Substance: CANDESARTAN CILEXETIL
     Indication: Hypertension
     Dosage: 32 MILLIGRAM, ONCE A DAY
     Route: 061
     Dates: end: 20250526
  6. HYDROCHLOROTHIAZIDE [Concomitant]
     Active Substance: HYDROCHLOROTHIAZIDE
     Indication: Hypertension
     Dosage: 25 MILLIGRAM, ONCE A DAY
     Route: 061
     Dates: end: 20250515
  7. CARBAMAZEPINE [Concomitant]
     Active Substance: CARBAMAZEPINE
     Indication: Trigeminal neuralgia
     Dosage: 100 MILLIGRAM, ONCE A DAY
     Route: 061
  8. PANTOPRAZOLE [Concomitant]
     Active Substance: PANTOPRAZOLE
     Indication: Product used for unknown indication
     Dosage: 20 MILLIGRAM, ONCE A DAY
     Route: 061

REACTIONS (1)
  - Mixed liver injury [Recovered/Resolved]

NARRATIVE: CASE EVENT DATE: 20250513
